FAERS Safety Report 9180930 (Version 3)
Quarter: 2013Q3

REPORT INFORMATION
  Report Type: Spontaneous
  Country: US (occurrence: None)
  Receive Date: 20130320
  Receipt Date: 20130812
  Transmission Date: 20140515
  Serious: Yes (Hospitalization)
  Sender: FDA-Public Use
  Company Number: 2013SGN00125

PATIENT
  Age: 30 Year
  Sex: Female
  Weight: 59.4 kg

DRUGS (2)
  1. BRENTUXIMAB VEDOTIN [Suspect]
     Indication: HODGKIN^S DISEASE REFRACTORY
     Dosage: 71 MG, SINGLE, INTRAVENOUS
     Route: 042
     Dates: start: 20130225, end: 20130225
  2. BENDAMUSTINE [Suspect]
     Indication: HODGKIN^S DISEASE REFRACTORY
     Dates: start: 20130225, end: 20130226

REACTIONS (5)
  - Pleural effusion [None]
  - Pyrexia [None]
  - Pneumonia [None]
  - Hodgkin^s disease refractory [None]
  - Malignant neoplasm progression [None]
